FAERS Safety Report 8685362 (Version 4)
Quarter: 2012Q4

REPORT INFORMATION
  Report Type: 
  Country: US (occurrence: US)
  Receive Date: 20120726
  Receipt Date: 20121119
  Transmission Date: 20130627
  Serious: Yes (Death, Hospitalization)
  Sender: FDA-Public Use
  Company Number: US-ACTELION-A-NJ2012-67872

PATIENT
  Age: 65 Year
  Sex: Male

DRUGS (4)
  1. TRACLEER [Suspect]
     Indication: PULMONARY ARTERIAL HYPERTENSION
     Dosage: UNK
     Route: 048
     Dates: start: 20090108, end: 20121023
  2. TYVASO [Concomitant]
  3. SILDENAFIL [Concomitant]
  4. IRON [Concomitant]

REACTIONS (7)
  - Scleroderma [Fatal]
  - Condition aggravated [Fatal]
  - Renal failure acute [Unknown]
  - Abdominal distension [Fatal]
  - Decreased appetite [Fatal]
  - Haemoglobin decreased [Fatal]
  - Ascites [Recovering/Resolving]
